FAERS Safety Report 4607867-2 (Version None)
Quarter: 2005Q1

REPORT INFORMATION
  Report Type: 
  Country: None (occurrence: None)
  Receive Date: 20050311
  Receipt Date: 20050228
  Transmission Date: 20050727
  Serious: Yes (Hospitalization)
  Sender: FDA-Public Use
  Company Number: 2005039864

PATIENT
  Age: 82 Year

DRUGS (3)
  1. PREDNISONE [Suspect]
     Indication: PULMONARY FIBROSIS
     Dosage: 8 MG (8 MG, 1 IN 1 D), ORAL
     Route: 048
     Dates: start: 20020101
  2. BENDROFLUMETHIAZIDE        (BENDROFLUMETHIAZIDE) [Concomitant]
  3. LANSOPRAZOLE      (LANSPRAZOLE) [Concomitant]

REACTIONS (3)
  - DEHYDRATION [None]
  - DIABETES MELLITUS NON-INSULIN-DEPENDENT [None]
  - DIZZINESS [None]
